FAERS Safety Report 6288121 (Version 2)
Quarter: 2014Q3

REPORT INFORMATION
  Report Type: Report from Study
  Country: SG (occurrence: SG)
  Receive Date: 20070413
  Receipt Date: 20140912
  Transmission Date: 20150326
  Serious: Yes (Death)
  Sender: FDA-Public Use
  Company Number: SG-PFIZER INC-2007026987

PATIENT

DRUGS (3)
  1. IRINOTECAN HYDROCHLORIDE SOLUTION, STERILE [Suspect]
     Active Substance: IRINOTECAN HYDROCHLORIDE
     Indication: NEOPLASM MALIGNANT
     Dosage: 60 MG/M2, DAYS 1 AND 8, CYCLIC
     Route: 041
  2. GEMCITABINE [Suspect]
     Active Substance: GEMCITABINE\GEMCITABINE HYDROCHLORIDE
     Indication: NEOPLASM MALIGNANT
     Dosage: 800 MG/M2 DAYS 1 AND 8, CYCLIC
     Route: 041
  3. CARBOPLATIN. [Suspect]
     Active Substance: CARBOPLATIN
     Indication: NEOPLASM MALIGNANT
     Dosage: 2 AUC, DAYS 1 AND 8, CYCLIC

REACTIONS (1)
  - Acute hepatic failure [Fatal]
